FAERS Safety Report 5890468-6 (Version None)
Quarter: 2008Q3

REPORT INFORMATION
  Report Type: 
  Country: None (occurrence: None)
  Receive Date: 20080922
  Receipt Date: 20080909
  Transmission Date: 20090109
  Serious: Yes (Hospitalization, Other)
  Sender: FDA-Public Use
  Company Number: CA-JNJFOC-20080204035

PATIENT
  Sex: Male
  Weight: 99.79 kg

DRUGS (8)
  1. REMICADE [Suspect]
     Route: 042
  2. REMICADE [Suspect]
     Route: 042
  3. REMICADE [Suspect]
     Indication: POUCHITIS
     Route: 042
  4. REMICADE [Suspect]
     Indication: CROHN'S DISEASE
     Dosage: FOR AT LEAST 2 YEARS
     Route: 042
  5. HUMIRA [Suspect]
     Indication: POUCHITIS
     Dosage: FOR 6 MONTHS
  6. CYCLOSPORINE [Concomitant]
     Indication: LIVER TRANSPLANT
  7. IMURAN [Concomitant]
     Indication: LIVER TRANSPLANT
  8. ANTIHYPERTENSIVE [Concomitant]

REACTIONS (5)
  - ASCITES [None]
  - LUPUS VASCULITIS [None]
  - LUPUS-LIKE SYNDROME [None]
  - PLEURAL EFFUSION [None]
  - POUCHITIS [None]
